FAERS Safety Report 16208388 (Version 2)
Quarter: 2019Q2

REPORT INFORMATION
  Report Type: Report from Study
  Country: CA (occurrence: CA)
  Receive Date: 20190417
  Receipt Date: 20190516
  Transmission Date: 20190711
  Serious: Yes (Death, Life-Threatening, Other)
  Sender: FDA-Public Use
  Company Number: CA-INCYTE CORPORATION-2016IN007900

PATIENT

DRUGS (4)
  1. EPREX [Concomitant]
     Active Substance: ERYTHROPOIETIN
     Indication: PRODUCT USED FOR UNKNOWN INDICATION
     Dosage: UNK
     Route: 065
  2. JAKAVI [Suspect]
     Active Substance: RUXOLITINIB
     Indication: MYELOFIBROSIS
     Dosage: 5 MG, BID
     Route: 048
     Dates: start: 20161130
  3. JAKAVI [Suspect]
     Active Substance: RUXOLITINIB
     Indication: BREAST CANCER
  4. COUMADIN [Concomitant]
     Active Substance: WARFARIN SODIUM
     Indication: PRODUCT USED FOR UNKNOWN INDICATION
     Dosage: UNK UNK, BID
     Route: 065

REACTIONS (17)
  - Flatulence [Recovering/Resolving]
  - Increased appetite [Unknown]
  - Constipation [Recovered/Resolved]
  - Haemoglobin decreased [Unknown]
  - Terminal state [Unknown]
  - Abdominal pain [Recovered/Resolved]
  - Platelet count decreased [Not Recovered/Not Resolved]
  - Splenomegaly [Unknown]
  - Back pain [Unknown]
  - Death [Fatal]
  - Weight increased [Unknown]
  - Pain [Unknown]
  - Acne [Unknown]
  - Asthenia [Unknown]
  - Insomnia [Recovered/Resolved]
  - Therapeutic response unexpected [Unknown]
  - Urinary tract infection [Recovered/Resolved]

NARRATIVE: CASE EVENT DATE: 20161130
